FAERS Safety Report 22066062 (Version 1)
Quarter: 2023Q1

REPORT INFORMATION
  Report Type: Spontaneous
  Country: US (occurrence: None)
  Receive Date: 20230306
  Receipt Date: 20230306
  Transmission Date: 20230418
  Serious: Yes (Hospitalization, Other)
  Sender: FDA-Public Use
  Company Number: 2023A054050

PATIENT
  Age: 82 Year
  Sex: Male

DRUGS (14)
  1. TUDORZA PRESSAIR [Suspect]
     Active Substance: ACLIDINIUM BROMIDE
     Indication: Product used for unknown indication
     Dosage: 1 ORAL INHALATION BID
  2. VENTOLIN [Concomitant]
     Active Substance: ALBUTEROL SULFATE
  3. ATORVASTATIN [Concomitant]
     Active Substance: ATORVASTATIN
  4. BUSPIRONE [Concomitant]
     Active Substance: BUSPIRONE HYDROCHLORIDE
  5. CLOPIDOGREL BISULFATE [Concomitant]
     Active Substance: CLOPIDOGREL BISULFATE
  6. SUBLINGUAL [Concomitant]
     Indication: Chest pain
  7. LOW DOSE ASPIRIN [Concomitant]
     Active Substance: ASPIRIN
  8. BENZONATATE [Concomitant]
     Active Substance: BENZONATATE
     Indication: Cough
     Dosage: 100.0MG/ML UNKNOWN
  9. MUCINEX [Concomitant]
     Active Substance: GUAIFENESIN
  10. FOLATE SODIUM [Concomitant]
     Active Substance: FOLATE SODIUM
  11. SUPER VITAMIN B COMPLEX [Concomitant]
  12. VITAMIN D3 [Concomitant]
     Active Substance: CHOLECALCIFEROL
  13. GINKGO [Concomitant]
     Active Substance: GINKGO
  14. ALBUTEROL [Concomitant]
     Active Substance: ALBUTEROL

REACTIONS (2)
  - Cerebrovascular accident [Unknown]
  - Product dose omission issue [Unknown]

NARRATIVE: CASE EVENT DATE: 20230101
